FAERS Safety Report 8885484 (Version 3)
Quarter: 2013Q3

REPORT INFORMATION
  Report Type: Spontaneous
  Country: US (occurrence: US)
  Receive Date: 20121101
  Receipt Date: 20130918
  Transmission Date: 20140515
  Serious: Yes (Hospitalization, Other)
  Sender: FDA-Public Use
  Company Number: US-PFIZER INC-2012269912

PATIENT
  Sex: Female

DRUGS (2)
  1. LIPITOR [Suspect]
     Dosage: UNK
  2. ZOLOFT [Suspect]
     Dosage: UNK

REACTIONS (5)
  - Peripheral arterial occlusive disease [Unknown]
  - Feeling abnormal [Unknown]
  - Loss of consciousness [Unknown]
  - Concussion [Unknown]
  - Fall [Unknown]
